FAERS Safety Report 8279889 (Version 3)
Quarter: 2012Q4

REPORT INFORMATION
  Report Type: 
  Country: US (occurrence: US)
  Receive Date: 20111208
  Receipt Date: 20120906
  Transmission Date: 20130627
  Serious: Yes (Life-Threatening, Hospitalization, Other)
  Sender: FDA-Public Use
  Company Number: US-ELI_LILLY_AND_COMPANY-US201111008631

PATIENT
  Age: 39 None
  Sex: Female

DRUGS (12)
  1. ZYPREXA [Suspect]
     Indication: BIPOLAR DISORDER
     Dosage: 1 DF, unknown
     Route: 065
     Dates: end: 200203
  2. ZYPREXA [Suspect]
     Dosage: 7.5 mg, each evening
  3. ZYPREXA [Suspect]
     Dosage: 5 mg, each evening
  4. ZOLOFT [Concomitant]
     Dosage: 100 mg, each morning
  5. DEPAKOTE [Concomitant]
     Dosage: 500 mg, bid
  6. DEPAKOTE [Concomitant]
     Dosage: 750 mg, each evening
  7. CLONOPIN [Concomitant]
     Dosage: 0.5 mg, bid
  8. DESOGEN [Concomitant]
     Indication: CONTRACEPTION
     Dosage: 1 DF, unknown
  9. IMITREX [Concomitant]
     Indication: MIGRAINE
     Dosage: 1 DF, unknown
  10. ATIVAN [Concomitant]
     Indication: AGITATION
  11. HALDOL [Concomitant]
     Dosage: 1 DF, prn
  12. COGENTIN [Concomitant]
     Indication: EXTRAPYRAMIDAL DISORDER
     Dosage: 1 mg, prn

REACTIONS (10)
  - Poisoning deliberate [Recovered/Resolved]
  - Hepatitis viral [Unknown]
  - Coma [Recovered/Resolved]
  - Pancreatitis [Recovered/Resolved]
  - Diabetes mellitus [Unknown]
  - Acne [Recovered/Resolved]
  - Hypertension [Unknown]
  - Hyperglycaemia [Unknown]
  - Hyperlipidaemia [Unknown]
  - Weight increased [Unknown]
